FAERS Safety Report 6932929-4 (Version None)
Quarter: 2010Q3

REPORT INFORMATION
  Report Type: 
  Country: None (occurrence: None)
  Receive Date: 20100819
  Receipt Date: 20100701
  Transmission Date: 20110219
  Serious: No
  Sender: FDA-Public Use
  Company Number: US-TYCO HEALTHCARE/MALLINCKRODT-T201001583

PATIENT
  Sex: Female

DRUGS (2)
  1. CONRAY [Suspect]
     Dosage: UNK
     Route: 058
     Dates: start: 20100701, end: 20100701
  2. BUPIVACAINE HCL [Suspect]
     Dosage: UNK

REACTIONS (2)
  - INCORRECT ROUTE OF DRUG ADMINISTRATION [None]
  - WRONG DRUG ADMINISTERED [None]
